FAERS Safety Report 4910560-X (Version None)
Quarter: 2006Q1

REPORT INFORMATION
  Report Type: 
  Country: None (occurrence: None)
  Receive Date: 20060214
  Receipt Date: 20060202
  Transmission Date: 20060701
  Serious: Yes (Life-Threatening, Hospitalization)
  Sender: FDA-Public Use
  Company Number: JP-ROCHE-435116

PATIENT
  Age: 38 Year
  Sex: Female

DRUGS (5)
  1. ROCEPHIN [Suspect]
     Indication: ACUTE TONSILLITIS
     Route: 042
     Dates: start: 20060130, end: 20060130
  2. GLUCOSE [Concomitant]
     Route: 042
     Dates: start: 20060130, end: 20060130
  3. ASPARA K [Concomitant]
     Route: 042
     Dates: start: 20060130, end: 20060130
  4. ASCORBIC ACID [Concomitant]
     Route: 042
     Dates: start: 20060130, end: 20060130
  5. 1 CONCOMITANT DRUG [Concomitant]
     Dosage: TRADE NAME REPORTED AS DIAINAMIX
     Route: 042
     Dates: start: 20060130, end: 20060130

REACTIONS (4)
  - BLOOD PRESSURE DECREASED [None]
  - DRUG HYPERSENSITIVITY [None]
  - HEART RATE INCREASED [None]
  - URTICARIA [None]
